FAERS Safety Report 7956178-6 (Version None)
Quarter: 2011Q4

REPORT INFORMATION
  Report Type: 
  Country: None (occurrence: None)
  Receive Date: 20111114
  Receipt Date: 20111108
  Transmission Date: 20120403
  Serious: Yes (Life-Threatening, Other)
  Sender: FDA-Public Use
  Company Number: 2011029653

PATIENT
  Sex: Female
  Weight: 81.6475 kg

DRUGS (18)
  1. VITAMIN B12 [Concomitant]
  2. HIZENTRA [Suspect]
     Indication: IMMUNODEFICIENCY COMMON VARIABLE
     Dosage: 1X/WEEK, INFUSED 30 ML VIA 2 SITES OVER 1-2 HOURS SUBCUTANEOUS)
     Route: 058
     Dates: start: 20101115
  3. SIMVASTATIN [Concomitant]
  4. VITAMIN D [Concomitant]
  5. HIZENTRA [Suspect]
     Dates: start: 20110827, end: 20110827
  6. VALIUM [Concomitant]
  7. TRICOR [Concomitant]
  8. CLONIDINE [Concomitant]
  9. ASPIRIN [Concomitant]
  10. ACETAMINOPHEN [Concomitant]
  11. DOXEPIN [Concomitant]
  12. HIZENTRA [Suspect]
     Dates: start: 20110827, end: 20110827
  13. CYMBALTA [Concomitant]
  14. BYSTOLIC [Concomitant]
  15. NORVASC [Concomitant]
  16. POTASSIUM CL (POTASSIUM CHLORIDE) [Concomitant]
  17. VISTARIL (HYDROXYZINE HYDROCHLORIDE) [Concomitant]
  18. PLAVIX [Concomitant]

REACTIONS (9)
  - THROAT TIGHTNESS [None]
  - INCREASED UPPER AIRWAY SECRETION [None]
  - BLOOD CREATININE INCREASED [None]
  - OBSTRUCTIVE AIRWAYS DISORDER [None]
  - BLOOD UREA INCREASED [None]
  - IMMUNE SYSTEM DISORDER [None]
  - RETCHING [None]
  - DYSARTHRIA [None]
  - DYSPNOEA [None]
